FAERS Safety Report 10210829 (Version 1)
Quarter: 2014Q2

REPORT INFORMATION
  Report Type: Spontaneous
  Country: US (occurrence: US)
  Receive Date: 20140602
  Receipt Date: 20140602
  Transmission Date: 20141212
  Serious: Yes (Hospitalization)
  Sender: FDA-Public Use
  Company Number: US-GLAXOSMITHKLINE-A1074799A

PATIENT
  Age: 50 Year
  Sex: Female

DRUGS (16)
  1. BENLYSTA [Suspect]
     Indication: SYSTEMIC LUPUS ERYTHEMATOSUS
     Route: 042
     Dates: start: 20130701, end: 20131025
  2. PREDNISONE [Concomitant]
  3. SOLU MEDROL [Concomitant]
  4. AZATHIOPRINE [Concomitant]
  5. HYDROXYCHLOROQUINE [Concomitant]
  6. TRAMADOL [Concomitant]
  7. HYDROXYZINE HCL [Concomitant]
  8. AMITRIPTYLINE [Concomitant]
  9. LEXAPRO [Concomitant]
  10. HCTZ [Concomitant]
  11. TOPIRAMATE [Concomitant]
  12. VITAMIN D [Concomitant]
  13. CALCIUM [Concomitant]
  14. NEBULIZER [Concomitant]
  15. ALBUTEROL [Concomitant]
  16. RESTASIS [Concomitant]

REACTIONS (4)
  - Abasia [Recovering/Resolving]
  - Peripheral swelling [Unknown]
  - Blood potassium decreased [Unknown]
  - Walking aid user [Not Recovered/Not Resolved]
